FAERS Safety Report 5815246-5 (Version None)
Quarter: 2008Q3

REPORT INFORMATION
  Report Type: 
  Country: None (occurrence: None)
  Receive Date: 20080718
  Receipt Date: 20080712
  Transmission Date: 20090109
  Serious: Yes (Other)
  Sender: FDA-Public Use
  Company Number: US-BOEHRINGER INGELHEIM GMBH, GERMANY-2008-BP-10973BP

PATIENT
  Sex: Female

DRUGS (7)
  1. MIRAPEX [Suspect]
     Indication: PARKINSON'S DISEASE
     Route: 048
  2. GABAPENTIN [Concomitant]
  3. AMANTADINE HCL [Concomitant]
  4. DETROL [Concomitant]
  5. LEVOTHYROXINE SODIUM [Concomitant]
  6. ZONEGRAN [Concomitant]
  7. SINEMET [Concomitant]

REACTIONS (1)
  - MALIGNANT MELANOMA [None]
